FAERS Safety Report 16639224 (Version 5)
Quarter: 2020Q3

REPORT INFORMATION
  Report Type: Report from Study
  Country: JP (occurrence: JP)
  Receive Date: 20190726
  Receipt Date: 20200917
  Transmission Date: 20201102
  Serious: Yes (Hospitalization, Other)
  Sender: FDA-Public Use
  Company Number: PHJP2019JP009673

PATIENT
  Age: 53 Year
  Sex: Male
  Weight: 54.2 kg

DRUGS (8)
  1. ILARIS [Suspect]
     Active Substance: CANAKINUMAB
     Dosage: 150 MG
     Route: 058
     Dates: start: 20190709, end: 20190709
  2. PREDONINE [Suspect]
     Active Substance: PREDNISOLONE
     Dosage: 2 MG, ONCE DAILY (IN THE MORNING)
     Route: 048
     Dates: start: 20190715
  3. TAKECAB [Concomitant]
     Active Substance: VONOPRAZAN FUMARATE
     Indication: PROPHYLAXIS
     Dosage: 10 MG
     Route: 048
  4. PREDONINE [Suspect]
     Active Substance: PREDNISOLONE
     Indication: PRODUCT USED FOR UNKNOWN INDICATION
     Dosage: UNK
     Route: 048
  5. BONALON [Concomitant]
     Active Substance: ALENDRONATE SODIUM
     Indication: PROPHYLAXIS
     Dosage: 35 MG
     Route: 048
  6. DAIPHEN [Concomitant]
     Active Substance: SULFAMETHOXAZOLE\TRIMETHOPRIM
     Indication: PROPHYLAXIS
     Dosage: UNK
     Route: 048
  7. RED BLOOD CELLS?LEUKOCYTES REDUCED [Concomitant]
     Active Substance: HUMAN RED BLOOD CELL
     Indication: PRODUCT USED FOR UNKNOWN INDICATION
     Dosage: 2 IU
     Route: 065
  8. ILARIS [Suspect]
     Active Substance: CANAKINUMAB
     Indication: FAMILIAL MEDITERRANEAN FEVER
     Dosage: 150 MG
     Route: 058
     Dates: start: 20190611

REACTIONS (12)
  - Pyrexia [Unknown]
  - Gastrointestinal oedema [Unknown]
  - Pleurisy [Recovered/Resolved]
  - Pleural effusion [Unknown]
  - Dyspnoea [Unknown]
  - Pneumonia [Recovering/Resolving]
  - Enterocolitis [Recovered/Resolved]
  - Splenomegaly [Recovered/Resolved]
  - Lung opacity [Unknown]
  - White blood cell count decreased [Unknown]
  - Rash [Unknown]
  - Malaise [Unknown]

NARRATIVE: CASE EVENT DATE: 20190712
